FAERS Safety Report 4528643-5 (Version None)
Quarter: 2004Q4

REPORT INFORMATION
  Report Type: 
  Country: None (occurrence: None)
  Receive Date: 20041216
  Receipt Date: 20041208
  Transmission Date: 20050328
  Serious: Yes (Hospitalization, Other)
  Sender: FDA-Public Use
  Company Number: US-GLAXOSMITHKLINE-A0536444A

PATIENT
  Age: 86 Year
  Sex: Female
  Weight: 50 kg

DRUGS (8)
  1. ECOTRIN REGULAR STRENGTH TABLETS [Suspect]
     Indication: DRUG USE FOR UNKNOWN INDICATION
     Dosage: 1TAB SINGLE DOSE
     Route: 048
     Dates: start: 20040101, end: 20040101
  2. FUROSEMIDE [Concomitant]
     Dosage: 40MG PER DAY
     Route: 048
  3. AUGMENTIN '125' [Concomitant]
     Dosage: 1000MG TWICE PER DAY
     Route: 048
  4. PAXIL [Concomitant]
     Dosage: 25MG PER DAY
     Route: 048
  5. ASPIRIN [Concomitant]
     Dosage: 1TAB PER DAY
     Route: 048
  6. PLAVIX [Concomitant]
     Dosage: 75MG PER DAY
     Route: 048
  7. ZOCOR [Concomitant]
     Dosage: 20MG PER DAY
     Route: 048
  8. XANAX [Concomitant]
     Dosage: .25MG AT NIGHT
     Route: 048

REACTIONS (9)
  - BLOOD PRESSURE DECREASED [None]
  - CARDIAC DISORDER [None]
  - DEHYDRATION [None]
  - ERYTHEMA [None]
  - HYPERSENSITIVITY [None]
  - INTESTINAL OBSTRUCTION [None]
  - LOCALISED INFECTION [None]
  - LUNG DISORDER [None]
  - SYNCOPE [None]
